FAERS Safety Report 10051037 (Version 1)
Quarter: 2014Q2

REPORT INFORMATION
  Report Type: Spontaneous
  Country: US (occurrence: US)
  Receive Date: 20140401
  Receipt Date: 20140401
  Transmission Date: 20141212
  Serious: No
  Sender: FDA-Public Use
  Company Number: US-BAYER-2014-045411

PATIENT
  Age: 50 Year
  Sex: Female

DRUGS (1)
  1. CLIMARA [Suspect]
     Dosage: 1 DF, OW
     Route: 062
     Dates: start: 20130318, end: 2014

REACTIONS (4)
  - Drug hypersensitivity [None]
  - Application site vesicles [None]
  - Application site erythema [None]
  - Application site irritation [None]
